FAERS Safety Report 24200146 (Version 1)
Quarter: 2024Q3

REPORT INFORMATION
  Report Type: Spontaneous
  Country: US (occurrence: None)
  Receive Date: 20240812
  Receipt Date: 20240812
  Transmission Date: 20241016
  Serious: No
  Sender: Public
  Company Number: None

PATIENT

DRUGS (1)
  1. SODIUM DESOXYCHOLATE [Suspect]
     Active Substance: SODIUM DESOXYCHOLATE

REACTIONS (10)
  - Sciatica [None]
  - Asthenia [None]
  - Ligament disorder [None]
  - Cartilage injury [None]
  - Exercise lack of [None]
  - Bedridden [None]
  - Injection site erythema [None]
  - Injection site abscess [None]
  - Injection site swelling [None]
  - Quality of life decreased [None]
